FAERS Safety Report 6015243-3 (Version None)
Quarter: 2008Q4

REPORT INFORMATION
  Report Type: 
  Country: None (occurrence: None)
  Receive Date: 20081219
  Receipt Date: 20081219
  Transmission Date: 20090506
  Serious: No
  Sender: FDA-Public Use
  Company Number: None

PATIENT
  Sex: Female
  Weight: 66.36 kg

DRUGS (21)
  1. WELLBUTRIN SR [Suspect]
     Dosage: 100 MG  SA QDORAL
     Route: 048
     Dates: start: 20081210, end: 20081219
  2. ACTOS [Concomitant]
  3. BACTROBAN [Concomitant]
  4. BENADRYL ORAL (DIPHENHYDRAMINE ORAL) [Concomitant]
  5. CALCIUM CITRATE VIT D [Concomitant]
  6. COMBIVENT (IPRATROPIUM AND ALBUTEROL SULFATE) [Concomitant]
  7. ERGOCALCIFEROL [Concomitant]
  8. FLUNISOLIDE NASAL 0.025% [Concomitant]
  9. GLUCOPHAGE [Concomitant]
  10. HALOBETASOL PROPIONATE 0.05% [Concomitant]
  11. HYDROCHLOROTHIAZIDE [Concomitant]
  12. HYDROXYZINE HCL [Concomitant]
  13. IMURAN [Concomitant]
  14. LISINOPRIL [Concomitant]
  15. OXYCODONE [Concomitant]
  16. PREDNISONE TAB [Concomitant]
  17. PROPRANOLOL HYDROCHLORIDE [Concomitant]
  18. QUALAQUIN (QUININE SULFATE CAP) [Concomitant]
  19. RANITIDINE HCL [Concomitant]
  20. TYLENOL (CAPLET) [Concomitant]
  21. VITAMIN B12 [Concomitant]

REACTIONS (1)
  - GASTROINTESTINAL DISORDER [None]
